FAERS Safety Report 6520204-1 (Version None)
Quarter: 2009Q4

REPORT INFORMATION
  Report Type: 
  Country: None (occurrence: None)
  Receive Date: 20091229
  Receipt Date: 20091214
  Transmission Date: 20100525
  Serious: Yes (Other)
  Sender: FDA-Public Use
  Company Number: PHHY2009BR56211

PATIENT
  Age: 17 Year
  Sex: Male

DRUGS (3)
  1. PAMELOR [Suspect]
     Dosage: 25 MG, 1 TABLET AT NIGHT
     Route: 048
     Dates: start: 20060101
  2. RITALIN [Suspect]
     Indication: PSYCHOMOTOR HYPERACTIVITY
     Dosage: 10 MG, QD
     Route: 048
     Dates: start: 20050101
  3. RITALIN [Suspect]
     Dosage: 20 MG, BID  (IN THE MORNING AND IN THE AFTERNOON)
     Route: 048
     Dates: start: 20060101

REACTIONS (2)
  - BIPOLAR DISORDER [None]
  - DEPRESSED MOOD [None]
